FAERS Safety Report 14198484 (Version 3)
Quarter: 2018Q1

REPORT INFORMATION
  Report Type: Report from Study
  Country: None (occurrence: RO)
  Receive Date: 20171117
  Receipt Date: 20180112
  Transmission Date: 20180508
  Serious: Yes (Death, Hospitalization, Other)
  Sender: FDA-Public Use
  Company Number: RO-ABBVIE-17S-135-2164586-00

PATIENT
  Age: 70 Year
  Sex: Female
  Weight: 80 kg

DRUGS (10)
  1. SINTROM [Concomitant]
     Active Substance: ACENOCOUMAROL
     Indication: ATRIAL FIBRILLATION
  2. EXVIERA [Suspect]
     Active Substance: DASABUVIR
     Indication: HEPATITIS C
  3. ACCUPRO [Concomitant]
     Active Substance: QUINAPRIL HYDROCHLORIDE
     Indication: HYPERTENSION
     Route: 065
     Dates: start: 20171101
  4. EXVIERA [Suspect]
     Active Substance: DASABUVIR
     Indication: HEPATIC CIRRHOSIS
     Route: 048
     Dates: start: 20171018, end: 20171106
  5. CARVEDILOL. [Concomitant]
     Active Substance: CARVEDILOL
     Indication: HYPERTENSION
     Route: 065
     Dates: start: 20171101
  6. VIEKIRAX [Suspect]
     Active Substance: OMBITASVIR\PARITAPREVIR\RITONAVIR
     Indication: HEPATITIS C
  7. CARVEDILOL. [Concomitant]
     Active Substance: CARVEDILOL
     Indication: ATRIAL FIBRILLATION
  8. SINTROM [Concomitant]
     Active Substance: ACENOCOUMAROL
     Indication: HYPERTENSION
     Route: 065
     Dates: start: 20171101
  9. VIEKIRAX [Suspect]
     Active Substance: OMBITASVIR\PARITAPREVIR\RITONAVIR
     Indication: HEPATIC CIRRHOSIS
     Route: 048
     Dates: start: 20171018, end: 20171106
  10. ACCUPRO [Concomitant]
     Active Substance: QUINAPRIL HYDROCHLORIDE
     Indication: ATRIAL FIBRILLATION

REACTIONS (14)
  - Acute pulmonary oedema [Fatal]
  - Oedema peripheral [Unknown]
  - Blood glucose increased [Fatal]
  - Glycosylated haemoglobin increased [Fatal]
  - Atrial fibrillation [Fatal]
  - Dyspnoea exertional [Fatal]
  - International normalised ratio increased [Fatal]
  - Fatigue [Unknown]
  - Cardio-respiratory arrest [Fatal]
  - Blood potassium decreased [Fatal]
  - Hyponatraemia [Fatal]
  - Cardiac failure chronic [Fatal]
  - Fibrin D dimer increased [Fatal]
  - Pleural effusion [Unknown]

NARRATIVE: CASE EVENT DATE: 2017
